FAERS Safety Report 5826584-4 (Version None)
Quarter: 2008Q3

REPORT INFORMATION
  Report Type: 
  Country: None (occurrence: None)
  Receive Date: 20080729
  Receipt Date: 20080729
  Transmission Date: 20090109
  Serious: Yes (Other)
  Sender: FDA-Public Use
  Company Number: None

PATIENT
  Age: 24 Year
  Sex: Female
  Weight: 85.7298 kg

DRUGS (1)
  1. DEPO-PROVERA [Suspect]
     Indication: CONTRACEPTION
     Dosage: 104 MG SUB CU Q 11-13 WEEKS
     Route: 058
     Dates: start: 20060407, end: 20070726

REACTIONS (2)
  - INJECTION SITE DISCOLOURATION [None]
  - INJECTION SITE REACTION [None]
